FAERS Safety Report 12452857 (Version 3)
Quarter: 2016Q3

REPORT INFORMATION
  Report Type: Report from Study
  Country: US (occurrence: US)
  Receive Date: 20160609
  Receipt Date: 20160907
  Transmission Date: 20161109
  Serious: Yes (Other)
  Sender: FDA-Public Use
  Company Number: PHEH2016US014245

PATIENT
  Sex: Female
  Weight: 28.6 kg

DRUGS (2)
  1. ILARIS [Suspect]
     Active Substance: CANAKINUMAB
     Dosage: UNK
     Route: 058
     Dates: start: 20160624
  2. ILARIS [Suspect]
     Active Substance: CANAKINUMAB
     Indication: PRODUCT USED FOR UNKNOWN INDICATION
     Dosage: 120 MG, EVERY 28 DAYS
     Route: 058
     Dates: start: 20160525

REACTIONS (13)
  - Histiocytosis haematophagic [Unknown]
  - Blood pressure increased [Unknown]
  - Cataract subcapsular [Unknown]
  - Asthenia [Unknown]
  - Juvenile idiopathic arthritis [Unknown]
  - Immunosuppression [Unknown]
  - Pulmonary hypertension [Unknown]
  - Posterior reversible encephalopathy syndrome [Unknown]
  - Joint range of motion decreased [Unknown]
  - Balance disorder [Unknown]
  - Hypermetropia [Unknown]
  - Heart rate increased [Unknown]
  - Rheumatic disorder [Unknown]
